FAERS Safety Report 18279951 (Version 1)
Quarter: 2020Q3

REPORT INFORMATION
  Report Type: Spontaneous
  Country: DE (occurrence: DE)
  Receive Date: 20200917
  Receipt Date: 20200917
  Transmission Date: 20201103
  Serious: Yes (Hospitalization, Other)
  Sender: FDA-Public Use
  Company Number: DE-MYLANLABS-2020M1078706

PATIENT
  Age: 64 Year
  Weight: 72 kg

DRUGS (5)
  1. PREDNISOLONE. [Suspect]
     Active Substance: PREDNISOLONE
     Dosage: 30 MG
  2. METHOTREXATE. [Suspect]
     Active Substance: METHOTREXATE
     Indication: OSTEOARTHRITIS
     Dosage: 15 MG, WEEKLY
     Route: 058
     Dates: start: 201709
  3. METHOTREXATE. [Suspect]
     Active Substance: METHOTREXATE
     Indication: NODAL OSTEOARTHRITIS
  4. METHOTREXATE. [Suspect]
     Active Substance: METHOTREXATE
     Indication: PSORIATIC ARTHROPATHY
  5. PREDNISOLONE. [Suspect]
     Active Substance: PREDNISOLONE
     Indication: PRODUCT USED FOR UNKNOWN INDICATION
     Dosage: 5 MG

REACTIONS (15)
  - Dactylitis [Unknown]
  - Giant cell arteritis [Unknown]
  - Off label use [Unknown]
  - Paraneoplastic arthritis [Unknown]
  - Endocarditis [Unknown]
  - Streptococcal infection [Unknown]
  - Polymyalgia rheumatica [Unknown]
  - Blood creatinine increased [Unknown]
  - Product use in unapproved indication [Unknown]
  - Fatigue [Not Recovered/Not Resolved]
  - Dyspnoea [Unknown]
  - Myalgia [Unknown]
  - C-reactive protein increased [Unknown]
  - Pleural effusion [Unknown]
  - Cardiac valve vegetation [Unknown]

NARRATIVE: CASE EVENT DATE: 20170807
